FAERS Safety Report 19396339 (Version 1)
Quarter: 2021Q2

REPORT INFORMATION
  Report Type: Spontaneous
  Country: CA (occurrence: CA)
  Receive Date: 20210609
  Receipt Date: 20210609
  Transmission Date: 20210717
  Serious: Yes (Other)
  Sender: FDA-Public Use
  Company Number: CA-GLAXOSMITHKLINE-CACH2021AMR036115

PATIENT
  Age: 16 Year
  Sex: Female

DRUGS (2)
  1. IBUPROFEN. [Suspect]
     Active Substance: IBUPROFEN
     Indication: SWELLING
     Dosage: 400 MG, QD
     Route: 048
  2. IBUPROFEN. [Suspect]
     Active Substance: IBUPROFEN
     Indication: PAIN

REACTIONS (3)
  - Dyspnoea [Recovered/Resolved]
  - Syncope [Recovered/Resolved]
  - Product use complaint [Unknown]
